FAERS Safety Report 7465538-1 (Version None)
Quarter: 2011Q2

REPORT INFORMATION
  Report Type: 
  Country: None (occurrence: None)
  Receive Date: 20110509
  Receipt Date: 20110429
  Transmission Date: 20111010
  Serious: Yes (Other)
  Sender: FDA-Public Use
  Company Number: FR-ROCHE-774405

PATIENT
  Sex: Female

DRUGS (9)
  1. CELLCEPT [Suspect]
     Route: 048
     Dates: start: 20070901, end: 20100901
  2. SOTALOL HCL [Suspect]
     Route: 048
     Dates: start: 20071001
  3. NOCTRAN [Suspect]
     Route: 065
  4. PRAVASTATIN SODIUM [Suspect]
     Route: 065
  5. EUPRESSYL [Suspect]
     Route: 048
  6. PAROXETINE HCL [Suspect]
     Route: 048
     Dates: start: 20090101
  7. PROGRAF [Suspect]
     Route: 048
     Dates: start: 20070901
  8. DITROPAN [Suspect]
     Route: 048
  9. FOLIC ACID [Suspect]
     Route: 048
     Dates: start: 20081101

REACTIONS (3)
  - INTERSTITIAL LUNG DISEASE [None]
  - DIFFUSE ALVEOLAR DAMAGE [None]
  - BRONCHIOLITIS [None]
